FAERS Safety Report 4980967-3 (Version None)
Quarter: 2006Q2

REPORT INFORMATION
  Report Type: 
  Country: None (occurrence: None)
  Receive Date: 20060418
  Receipt Date: 20060405
  Transmission Date: 20061013
  Serious: Yes (Disabling, Other)
  Sender: FDA-Public Use
  Company Number: US200604001057

PATIENT
  Age: 45 Year
  Sex: Male

DRUGS (2)
  1. ZYPREXA [Suspect]
     Dosage: 20 MG, 2/.D, ORAL
     Route: 048
     Dates: start: 20060310, end: 20060401
  2. ZYRTEC-D 12 HOUR [Concomitant]

REACTIONS (14)
  - ACCIDENTAL OVERDOSE [None]
  - ANXIETY [None]
  - CONFUSIONAL STATE [None]
  - DRUG DISPENSING ERROR [None]
  - DYSPHEMIA [None]
  - FATIGUE [None]
  - HYPERLIPIDAEMIA [None]
  - HYPERSOMNIA [None]
  - INSOMNIA [None]
  - LOSS OF CONSCIOUSNESS [None]
  - MEDICATION ERROR [None]
  - SEDATION [None]
  - SLEEP DISORDER [None]
  - SPEECH DISORDER [None]
